FAERS Safety Report 9364494 (Version 2)
Quarter: 2013Q3

REPORT INFORMATION
  Report Type: Spontaneous
  Country: TR (occurrence: None)
  Receive Date: 20130619
  Receipt Date: 20130723
  Transmission Date: 20140515
  Serious: Yes (Other)
  Sender: FDA-Public Use
  Company Number: TR-1198707

PATIENT
  Age: 65 Year
  Sex: Male

DRUGS (2)
  1. VIGAMOX [Suspect]
     Indication: POSTOPERATIVE CARE
     Route: 050
     Dates: start: 20130602
  2. PRED-FORTE [Suspect]
     Indication: POSTOPERATIVE CARE
     Route: 050

REACTIONS (2)
  - Ulcerative keratitis [None]
  - Graft complication [None]
